FAERS Safety Report 20168715 (Version 2)
Quarter: 2021Q4

REPORT INFORMATION
  Report Type: Spontaneous
  Country: US (occurrence: US)
  Receive Date: 20211210
  Receipt Date: 20211214
  Transmission Date: 20220303
  Serious: No
  Sender: FDA-Public Use
  Company Number: US-ELI_LILLY_AND_COMPANY-US202112004076

PATIENT
  Sex: Female

DRUGS (2)
  1. HUMALOG [Suspect]
     Active Substance: INSULIN LISPRO
     Indication: Diabetes mellitus
     Dosage: 4 UNITS UP TO 6 U, UNKNOWN
     Route: 058
  2. HUMALOG [Suspect]
     Active Substance: INSULIN LISPRO
     Dosage: 4 UNITS UP TO 6 U, UNKNOWN
     Route: 058
     Dates: start: 202109

REACTIONS (4)
  - Injection site pain [Unknown]
  - Injection site hypoaesthesia [Unknown]
  - Nervousness [Unknown]
  - Presyncope [Unknown]
